FAERS Safety Report 14617522 (Version 3)
Quarter: 2018Q2

REPORT INFORMATION
  Report Type: Spontaneous
  Country: FR (occurrence: FR)
  Receive Date: 20180309
  Receipt Date: 20180416
  Transmission Date: 20180711
  Serious: Yes (Hospitalization, Other)
  Sender: FDA-Public Use
  Company Number: FR-AUROBINDO-AUR-APL-2018-011705

PATIENT
  Age: 92 Year
  Sex: Female

DRUGS (10)
  1. PARACETAMOL TABLET [Suspect]
     Active Substance: ACETAMINOPHEN
     Indication: JOINT INJURY
     Dosage: ()
  2. ALPRAZOLAM. [Interacting]
     Active Substance: ALPRAZOLAM
     Dosage: 0.25MG THREE TIMES A DAY, .75 MILLIGRAM DAILY;
     Route: 065
  3. ALPRAZOLAM. [Interacting]
     Active Substance: ALPRAZOLAM
     Dosage: 0.25 MG, TID
  4. ZOLPIDEM [Suspect]
     Active Substance: ZOLPIDEM\ZOLPIDEM TARTRATE
     Indication: PRODUCT USED FOR UNKNOWN INDICATION
     Dosage: 10 MILLIGRAM DAILY; (AT BEDTIME)
     Route: 065
  5. INSULIN [Concomitant]
     Active Substance: INSULIN NOS
     Dosage: ()
  6. INSULIN [Concomitant]
     Active Substance: INSULIN NOS
     Dosage: ()
  7. ZOLPIDEM [Suspect]
     Active Substance: ZOLPIDEM\ZOLPIDEM TARTRATE
     Dosage: 10 MG, NA
  8. ALPRAZOLAM. [Interacting]
     Active Substance: ALPRAZOLAM
     Indication: PRODUCT USED FOR UNKNOWN INDICATION
     Dosage: 0.25MG THREE TIMES A DAY, .75 MILLIGRAM DAILY;
     Route: 065
  9. ZOLPIDEM [Suspect]
     Active Substance: ZOLPIDEM\ZOLPIDEM TARTRATE
     Dosage: 10 MILLIGRAM DAILY; (AT BEDTIME)
     Route: 065
  10. INSULIN [Concomitant]
     Active Substance: INSULIN NOS
     Dosage: ()

REACTIONS (6)
  - Generalised tonic-clonic seizure [Recovered/Resolved]
  - Intentional product misuse [Recovering/Resolving]
  - General physical health deterioration [Unknown]
  - Performance status decreased [Unknown]
  - Drug withdrawal syndrome [Recovering/Resolving]
  - Drug interaction [Unknown]
